FAERS Safety Report 7911509-8 (Version None)
Quarter: 2011Q4

REPORT INFORMATION
  Report Type: 
  Country: None (occurrence: None)
  Receive Date: 20111114
  Receipt Date: 20111103
  Transmission Date: 20120403
  Serious: Yes (Hospitalization)
  Sender: FDA-Public Use
  Company Number: US-SANOFI-AVENTIS-2011SA072992

PATIENT
  Age: 73 Year
  Sex: Male

DRUGS (4)
  1. ASPIRIN [Suspect]
     Route: 065
  2. PLAVIX [Suspect]
     Route: 048
     Dates: start: 20100401
  3. INSULIN [Concomitant]
     Indication: DIABETES MELLITUS
  4. ALL OTHER THERAPEUTIC PRODUCTS [Suspect]
     Dates: start: 20100401

REACTIONS (1)
  - CORONARY ARTERY RESTENOSIS [None]
